FAERS Safety Report 6622244-0 (Version None)
Quarter: 2010Q1

REPORT INFORMATION
  Report Type: 
  Country: None (occurrence: None)
  Receive Date: 20100304
  Receipt Date: 20100217
  Transmission Date: 20100710
  Serious: No
  Sender: FDA-Public Use
  Company Number: 008939

PATIENT
  Age: 59 Year
  Sex: Male

DRUGS (5)
  1. BUSULFEX [Suspect]
     Indication: STEM CELL TRANSPLANT
     Dates: start: 20080601
  2. BUSULFEX [Suspect]
     Indication: STEM CELL TRANSPLANT
     Dates: start: 20090611
  3. FLUDARABINE PHOSPHATE [Concomitant]
  4. IMATINIB MESYLATE [Concomitant]
  5. DASATINIB HYDRATE [Concomitant]

REACTIONS (3)
  - HISTIOCYTOSIS HAEMATOPHAGIC [None]
  - INFECTION [None]
  - THROMBOTIC MICROANGIOPATHY [None]
